FAERS Safety Report 5222451-8 (Version None)
Quarter: 2007Q1

REPORT INFORMATION
  Report Type: 
  Country: None (occurrence: None)
  Receive Date: 20070124
  Receipt Date: 20070117
  Transmission Date: 20070707
  Serious: Yes (Hospitalization)
  Sender: FDA-Public Use
  Company Number: 163-21880-06110126

PATIENT
  Age: 82 Year
  Sex: Female

DRUGS (15)
  1. REVLIMID [Suspect]
     Indication: MULTIPLE MYELOMA
     Dosage: 25 MG, 1 IN 1 D, ORAL
     Route: 048
     Dates: start: 20061027
  2. VITAMIN D [Suspect]
     Indication: DRUG USE FOR UNKNOWN INDICATION
     Dosage: 2 IN 1 D, ORAL
     Route: 048
  3. PENTASA (250 MICROGRAM) [Concomitant]
  4. SYNTHROID (LEVOTHYROXINE SODIUM) (50 MICROGRAM) [Concomitant]
  5. HYDROCHLOROT (GENERIC) (HYDROCLOROTHIAZIDE) (25 MILLIGRAM) [Concomitant]
  6. LISINOPRIL (LISINOPRIL) (10 MILLIGRAM) [Concomitant]
  7. POTASSIUM CHLORIDE [Concomitant]
  8. GABAPENTIN (GABAPENTIN) (300 MILLIGRAM) [Concomitant]
  9. PREVACID [Concomitant]
  10. CALCIUM (CALCIUM) [Concomitant]
  11. MAGNESIUM OXIDE (MAGNESIUM OXIDE) (250 MILLIGRAM) [Concomitant]
  12. VITAMIN B6 (PYRIDOXINE  HYDROCHLORIDE) (50 MILLIGRAM) [Concomitant]
  13. VITAMIN B12 (CYANOCOBALAMIN) (1000 MICROGRAM) [Concomitant]
  14. ENABLEX (DARIFENACIN) (7.5 MILLIGRAM) [Concomitant]
  15. DECADRON [Concomitant]

REACTIONS (3)
  - NAUSEA [None]
  - VIRAL INFECTION [None]
  - VOMITING [None]
